FAERS Safety Report 5780502-6 (Version None)
Quarter: 2008Q2

REPORT INFORMATION
  Report Type: 
  Country: None (occurrence: None)
  Receive Date: 20080620
  Receipt Date: 20080611
  Transmission Date: 20081010
  Serious: Yes (Life-Threatening)
  Sender: FDA-Public Use
  Company Number: GB-JNJFOC-20080603975

PATIENT
  Age: 62 Year
  Sex: Male
  Weight: 87 kg

DRUGS (3)
  1. REMICADE [Suspect]
     Indication: COLITIS ULCERATIVE
  2. PREDNISOLONE [Concomitant]
     Indication: COLITIS ULCERATIVE
  3. PENTASA [Concomitant]
     Indication: COLITIS ULCERATIVE

REACTIONS (9)
  - ABDOMINAL PAIN [None]
  - CHEST DISCOMFORT [None]
  - FEELING HOT [None]
  - FLUSHING [None]
  - INFUSION RELATED REACTION [None]
  - NAUSEA [None]
  - SUFFOCATION FEELING [None]
  - VISION BLURRED [None]
  - WITHDRAWAL SYNDROME [None]
